FAERS Safety Report 12211085 (Version 2)
Quarter: 2016Q2

REPORT INFORMATION
  Report Type: Spontaneous
  Country: FR (occurrence: FR)
  Receive Date: 20160325
  Receipt Date: 20160418
  Transmission Date: 20160815
  Serious: Yes (Other)
  Sender: FDA-Public Use
  Company Number: FR-PFIZER INC-2016165863

PATIENT
  Age: 32 Year
  Sex: Male

DRUGS (15)
  1. TRIFLUCAN [Suspect]
     Active Substance: FLUCONAZOLE
     Indication: CANDIDA INFECTION
     Dosage: UNK
     Route: 042
     Dates: start: 20160201, end: 20160204
  2. RITALINE [Concomitant]
     Active Substance: METHYLPHENIDATE HYDROCHLORIDE
     Dosage: 60 MG, 2X/DAY
     Route: 048
     Dates: start: 201310, end: 20160120
  3. CANCIDAS [Concomitant]
     Active Substance: CASPOFUNGIN ACETATE
     Dosage: 35 MG, UNK
     Route: 048
     Dates: start: 20160121
  4. ACUPAN [Concomitant]
     Active Substance: NEFOPAM HYDROCHLORIDE
     Dosage: UNK
     Route: 030
     Dates: start: 20160127
  5. LOVENOX [Concomitant]
     Active Substance: ENOXAPARIN SODIUM
     Dosage: UNK
     Route: 058
     Dates: start: 20160202
  6. VANCOMYCIN [Concomitant]
     Active Substance: VANCOMYCIN
     Dosage: UNK
     Route: 042
     Dates: start: 20160206
  7. CANCIDAS [Concomitant]
     Active Substance: CASPOFUNGIN ACETATE
     Dosage: 50 MG, UNK
     Route: 048
     Dates: start: 20160124, end: 20160201
  8. TIAPRIDAL /00435701/ [Concomitant]
     Active Substance: TIAPRIDE HYDROCHLORIDE
     Dosage: 50 MG, 3X/DAY
     Route: 048
     Dates: start: 20160120
  9. AUGMENTIN [Concomitant]
     Active Substance: AMOXICILLIN\CLAVULANATE POTASSIUM
     Indication: ERYSIPELAS
     Dosage: 2 G, 3X/DAY
     Route: 042
     Dates: start: 20160115, end: 20160119
  10. CANCIDAS [Concomitant]
     Active Substance: CASPOFUNGIN ACETATE
     Indication: CANDIDA INFECTION
     Dosage: UNK
     Route: 048
     Dates: start: 20160119
  11. GENTAMICIN. [Concomitant]
     Active Substance: GENTAMICIN
     Indication: PEPTOSTREPTOCOCCUS INFECTION
     Dosage: 240 MG, UNK
     Route: 042
     Dates: start: 20160116, end: 20160121
  12. INEXIUM /01479302/ [Concomitant]
     Active Substance: ESOMEPRAZOLE MAGNESIUM
     Dosage: 20 MG, UNK
     Route: 048
     Dates: start: 20160202
  13. TAZOCILLINE [Suspect]
     Active Substance: PIPERACILLIN SODIUM\TAZOBACTAM SODIUM
     Dosage: 4 G, 3X/DAY
     Route: 042
     Dates: start: 20160119, end: 20160206
  14. SKENAN [Concomitant]
     Active Substance: MORPHINE SULFATE
     Dosage: 200 MG, 2X/DAY
     Route: 048
     Dates: start: 201310
  15. AMIKLIN /00391001/ [Concomitant]
     Active Substance: AMIKACIN SULFATE
     Dosage: UNK
     Route: 042

REACTIONS (1)
  - Febrile neutropenia [Recovered/Resolved]

NARRATIVE: CASE EVENT DATE: 20160207
